FAERS Safety Report 7953761-9 (Version None)
Quarter: 2011Q4

REPORT INFORMATION
  Report Type: 
  Country: None (occurrence: None)
  Receive Date: 20111202
  Receipt Date: 20111122
  Transmission Date: 20120403
  Serious: Yes (Death, Hospitalization)
  Sender: FDA-Public Use
  Company Number: JP-JNJFOC-20111111197

PATIENT
  Sex: Male

DRUGS (23)
  1. PLAVIX [Concomitant]
     Indication: CEREBRAL INFARCTION
     Route: 048
     Dates: start: 20110317, end: 20110511
  2. FLUOROMETHOLONE [Concomitant]
     Route: 065
     Dates: start: 20110518, end: 20110920
  3. LANSOPRAZOLE [Concomitant]
     Indication: GASTRIC ULCER
     Route: 048
     Dates: start: 20101111
  4. CEFOTAXIME SODIUM [Concomitant]
     Indication: PNEUMONIA
     Route: 042
     Dates: start: 20110421, end: 20110421
  5. KENALOG [Concomitant]
     Route: 065
     Dates: start: 20110515, end: 20110517
  6. ACETAMINOPHEN [Concomitant]
     Route: 054
     Dates: start: 20110420, end: 20110420
  7. RINDERON-VG [Concomitant]
     Route: 065
     Dates: start: 20110510, end: 20110515
  8. ZINC OXIDE [Concomitant]
     Route: 065
     Dates: start: 20110513, end: 20110517
  9. MEROPENEM [Concomitant]
     Route: 042
     Dates: start: 20110420, end: 20110420
  10. VOLTAREN [Concomitant]
     Indication: HYPERTHERMIA
     Route: 054
     Dates: start: 20110425, end: 20110425
  11. FLAVITAN [Concomitant]
     Route: 065
     Dates: start: 20110518, end: 20110920
  12. CEFOTAXIME SODIUM [Concomitant]
     Route: 042
     Dates: start: 20110424, end: 20110424
  13. MEROPENEM [Concomitant]
     Indication: PNEUMONIA
     Route: 042
     Dates: start: 20110509, end: 20110515
  14. MEROPENEM [Concomitant]
     Route: 042
     Dates: start: 20110525, end: 20110531
  15. ACETAMINOPHEN [Concomitant]
     Indication: HYPERTHERMIA
     Route: 054
     Dates: start: 20110424, end: 20110425
  16. LEVOFLOXACIN [Suspect]
     Indication: PNEUMONIA
     Route: 048
     Dates: start: 20110421, end: 20110511
  17. FERROUS CITRATE [Concomitant]
     Indication: IRON DEFICIENCY ANAEMIA
     Route: 048
     Dates: start: 20110317
  18. CONIEL [Concomitant]
     Indication: HYPERTENSION
     Route: 048
     Dates: start: 20110317
  19. CEFOTAXIME SODIUM [Concomitant]
     Route: 042
     Dates: start: 20110507, end: 20110508
  20. COLDRIN [Concomitant]
     Indication: COUGH
     Route: 048
     Dates: start: 20110421, end: 20110517
  21. DIPYRONE TAB [Concomitant]
     Indication: HYPERTHERMIA
     Route: 030
     Dates: start: 20110425, end: 20110425
  22. CARBAMAZEPINE [Concomitant]
     Route: 065
     Dates: start: 20110513, end: 20110517
  23. GLYCEROL 2.6% [Concomitant]
     Route: 065
     Dates: start: 20110527

REACTIONS (2)
  - DEATH [None]
  - TOXIC EPIDERMAL NECROLYSIS [None]
